FAERS Safety Report 4350763-9 (Version None)
Quarter: 2004Q2

REPORT INFORMATION
  Report Type: 
  Country: None (occurrence: None)
  Receive Date: 20040430
  Receipt Date: 20040421
  Transmission Date: 20050107
  Serious: Yes (Hospitalization, Other)
  Sender: FDA-Public Use
  Company Number: JP-BRISTOL-MYERS SQUIBB COMPANY-12573812

PATIENT
  Age: 61 Year
  Sex: Female
  Weight: 50 kg

DRUGS (2)
  1. SINEMET [Suspect]
     Indication: PARKINSON'S DISEASE
     Dosage: ^SINEMET 100/100 MG TABLET^
     Route: 048
     Dates: start: 20031110, end: 20040318
  2. BROTIZOLAM [Concomitant]
     Dates: start: 20031110

REACTIONS (4)
  - AKATHISIA [None]
  - CONTUSION [None]
  - FALL [None]
  - LOWER LIMB FRACTURE [None]
